FAERS Safety Report 20430909 (Version 1)
Quarter: 2022Q1

REPORT INFORMATION
  Report Type: Spontaneous
  Country: US (occurrence: US)
  Receive Date: 20220204
  Receipt Date: 20220204
  Transmission Date: 20220423
  Serious: No
  Sender: FDA-Public Use
  Company Number: US-OYSTER POINT PHARMA, INC.-2021OYS00031

PATIENT
  Age: 63 Year
  Sex: Male
  Weight: 72.575 kg

DRUGS (4)
  1. TYRVAYA [Suspect]
     Active Substance: VARENICLINE TARTRATE
     Indication: Dry eye
     Dosage: 1 DOSAGE FORM (SPRAY), IN EACH NOSTRIL, 2X/DAY (MORNING AND EVENING)
     Route: 045
     Dates: start: 20211104
  2. CEVIMELINE [Concomitant]
     Active Substance: CEVIMELINE
  3. XIIDRA [Concomitant]
     Active Substance: LIFITEGRAST
  4. AZASITE [Concomitant]
     Active Substance: AZITHROMYCIN MONOHYDRATE

REACTIONS (3)
  - Intranasal paraesthesia [Not Recovered/Not Resolved]
  - Therapeutic product effect incomplete [Not Recovered/Not Resolved]
  - Sneezing [Recovering/Resolving]

NARRATIVE: CASE EVENT DATE: 20211104
